FAERS Safety Report 24709166 (Version 1)
Quarter: 2024Q4

REPORT INFORMATION
  Report Type: Report from Study
  Country: CO (occurrence: CO)
  Receive Date: 20241208
  Receipt Date: 20241208
  Transmission Date: 20250114
  Serious: Yes (Hospitalization)
  Sender: BIOGEN
  Company Number: CO-BIOGEN-2024BI01292940

PATIENT
  Age: 33 Year
  Sex: Female
  Weight: 65 kg

DRUGS (3)
  1. TYSABRI [Suspect]
     Active Substance: NATALIZUMAB
     Indication: Multiple sclerosis
     Dosage: 1 INTRAVENOUS INFUSION OF 300 MG OF TYSABRI (NATALIZUMAB) (FREQUENCY NOT PROVIDED)
     Route: 050
     Dates: start: 20220906, end: 20241112
  2. TYSABRI [Suspect]
     Active Substance: NATALIZUMAB
     Dosage: 1 INTRAVENOUS INFUSION OF 300 MG OF TYSABRI (NATALIZUMAB) EVERY 45 DAYS
     Route: 050
     Dates: start: 20241112
  3. PREGABALIN [Concomitant]
     Active Substance: PREGABALIN
     Indication: Pain
     Dosage: ORAL PREGABALIN (DOSE, STRENGTH AND FREQUENCY NOT PROVIDED)
     Route: 050
     Dates: start: 2022

REACTIONS (2)
  - Facial paresis [Recovered/Resolved]
  - Multiple sclerosis [Not Recovered/Not Resolved]

NARRATIVE: CASE EVENT DATE: 20241129
